FAERS Safety Report 23545489 (Version 2)
Quarter: 2024Q2

REPORT INFORMATION
  Report Type: Spontaneous
  Country: US (occurrence: US)
  Receive Date: 20240220
  Receipt Date: 20240502
  Transmission Date: 20240715
  Serious: Yes (Other)
  Sender: FDA-Public Use
  Company Number: US-PFIZER INC-202400041609

PATIENT
  Age: 77 Year
  Sex: Male
  Weight: 145.15 kg

DRUGS (1)
  1. RETACRIT [Suspect]
     Active Substance: EPOETIN ALFA-EPBX
     Indication: Red blood cell count decreased
     Dosage: UNK, WEEKLY
     Route: 042

REACTIONS (6)
  - Dependence on respirator [Unknown]
  - Haemoglobin decreased [Unknown]
  - White blood cell count decreased [Unknown]
  - Fracture [Unknown]
  - Arteriosclerosis [Unknown]
  - Off label use [Unknown]
